FAERS Safety Report 8126690-8 (Version None)
Quarter: 2012Q1

REPORT INFORMATION
  Report Type: 
  Country: None (occurrence: None)
  Receive Date: 20120210
  Receipt Date: 20120131
  Transmission Date: 20120608
  Serious: No
  Sender: FDA-Public Use
  Company Number: US-BIOGENIDEC-2012BI004070

PATIENT
  Age: 45 Year
  Sex: Female

DRUGS (3)
  1. TYSABRI [Suspect]
     Indication: MULTIPLE SCLEROSIS
     Route: 042
     Dates: start: 20091109, end: 20100928
  2. TYSABRI [Suspect]
     Route: 042
     Dates: start: 20110831
  3. BENADRYL [Concomitant]
     Indication: PREMEDICATION
     Dates: start: 20100101

REACTIONS (9)
  - SKIN IRRITATION [None]
  - DRUG SPECIFIC ANTIBODY PRESENT [None]
  - NAUSEA [None]
  - PYREXIA [None]
  - VOMITING [None]
  - DYSPEPSIA [None]
  - DIARRHOEA [None]
  - RASH PRURITIC [None]
  - MUSCULOSKELETAL DISORDER [None]
